FAERS Safety Report 8418708-X (Version None)
Quarter: 2012Q2

REPORT INFORMATION
  Report Type: 
  Country: None (occurrence: None)
  Receive Date: 20120607
  Receipt Date: 20120528
  Transmission Date: 20120825
  Serious: Yes (Other)
  Sender: FDA-Public Use
  Company Number: BR-AMGEN-BRASP2012034582

PATIENT
  Age: 51 Year
  Sex: Female

DRUGS (8)
  1. LOSARTAN [Concomitant]
     Dosage: UNK UNK, UNK
  2. OMEPRAZOLE [Concomitant]
     Dosage: UNK UNK, UNK
  3. METHOTREXATE [Concomitant]
     Dosage: UNK UNK, UNK
  4. LEXOTAN [Concomitant]
     Dosage: UNK UNK, UNK
  5. FOLIC ACID [Concomitant]
     Dosage: UNK UNK, UNK
  6. ENBREL [Suspect]
     Indication: RHEUMATOID ARTHRITIS
     Dosage: 50 MG, ONCE WEEKLY
     Route: 058
     Dates: start: 20120101, end: 20120401
  7. HYDROCHLOROTHIAZDE TAB [Concomitant]
     Dosage: UNK UNK, UNK
  8. PREDNISONE [Concomitant]
     Dosage: UNK UNK, UNK

REACTIONS (5)
  - ARTHROPOD BITE [None]
  - OPEN WOUND [None]
  - INJECTION SITE PAIN [None]
  - WRONG TECHNIQUE IN DRUG USAGE PROCESS [None]
  - WOUND COMPLICATION [None]
